FAERS Safety Report 5336983-5 (Version None)
Quarter: 2007Q2

REPORT INFORMATION
  Report Type: 
  Country: None (occurrence: None)
  Receive Date: 20070523
  Receipt Date: 20070515
  Transmission Date: 20071010
  Serious: Yes (Hospitalization)
  Sender: FDA-Public Use
  Company Number: S07-FRA-01415-01

PATIENT
  Sex: Female

DRUGS (3)
  1. CERVIDIL [Suspect]
     Indication: CERVIX DISORDER
     Dosage: 10 MG ONCE VG
     Dates: start: 20070209
  2. SYNTOCINON [Suspect]
     Indication: LABOUR INDUCTION
     Dates: start: 20070209
  3. SALBUTAMOL [Concomitant]

REACTIONS (4)
  - CONVULSION [None]
  - MENINGISM [None]
  - NUCLEAR MAGNETIC RESONANCE IMAGING BRAIN ABNORMAL [None]
  - REVERSIBLE POSTERIOR LEUKOENCEPHALOPATHY SYNDROME [None]
